FAERS Safety Report 18503940 (Version 1)
Quarter: 2020Q4

REPORT INFORMATION
  Report Type: Spontaneous
  Country: US (occurrence: US)
  Receive Date: 20201114
  Receipt Date: 20201114
  Transmission Date: 20210114
  Serious: No
  Sender: FDA-Public Use
  Company Number: NVSC2020US302457

PATIENT
  Sex: Female

DRUGS (1)
  1. MEKINIST [Suspect]
     Active Substance: TRAMETINIB DIMETHYL SULFOXIDE
     Indication: THYROID NEOPLASM
     Dosage: 2 MG, QD
     Route: 048
     Dates: start: 20201001

REACTIONS (4)
  - Dry skin [Unknown]
  - Rash [Unknown]
  - Acne [Unknown]
  - Visual impairment [Unknown]
